FAERS Safety Report 9913042 (Version 1)
Quarter: 2014Q1

REPORT INFORMATION
  Report Type: Spontaneous
  Country: IN (occurrence: None)
  Receive Date: 20140212
  Receipt Date: 20140212
  Transmission Date: 20141002
  Serious: Yes (Other)
  Sender: FDA-Public Use
  Company Number: IN-ALKEM-000488

PATIENT
  Age: 30 Year
  Sex: Male

DRUGS (4)
  1. QUETIAPINE [Suspect]
     Indication: MANIA
  2. HALOPERIDOL [Concomitant]
  3. TRIHEXYPHENIDYL [Concomitant]
  4. LITHIUM (LITHIUM) [Concomitant]

REACTIONS (4)
  - Self-medication [None]
  - Alanine aminotransferase increased [None]
  - Aspartate aminotransferase increased [None]
  - Poor quality sleep [None]
